FAERS Safety Report 5831790-9 (Version None)
Quarter: 2008Q3

REPORT INFORMATION
  Report Type: 
  Country: None (occurrence: None)
  Receive Date: 20080804
  Receipt Date: 20080724
  Transmission Date: 20090109
  Serious: Yes (Hospitalization, Other)
  Sender: FDA-Public Use
  Company Number: GB-RANBAXY-2008RR-16202

PATIENT

DRUGS (7)
  1. DIAZEPAM [Suspect]
     Indication: PAIN MANAGEMENT
     Route: 065
  2. FENTANYL-100 [Suspect]
     Indication: PAIN MANAGEMENT
     Route: 062
  3. MORPHINE [Suspect]
     Indication: PAIN MANAGEMENT
     Route: 065
  4. OXYCODONE HCL [Suspect]
     Indication: PAIN MANAGEMENT
  5. AMITRIPTYLINE HCL [Suspect]
     Indication: PAIN
     Dosage: 50 MG, UNK
     Route: 065
  6. GABAPENTIN CAPSULE 100MG [Suspect]
     Indication: PAIN
     Dosage: 900 MG, TID
     Route: 065
  7. ACETAMINOPHEN [Suspect]
     Indication: PAIN
     Dosage: 1 G, QID
     Route: 065

REACTIONS (2)
  - DRUG INEFFECTIVE [None]
  - SEDATION [None]
